FAERS Safety Report 10630793 (Version 1)
Quarter: 2014Q4

REPORT INFORMATION
  Report Type: Spontaneous
  Country: US (occurrence: US)
  Receive Date: 20141205
  Receipt Date: 20141205
  Transmission Date: 20150529
  Serious: Yes (Other)
  Sender: FDA-Public Use
  Company Number: US-BRISTOL-MYERS SQUIBB COMPANY-20584280

PATIENT
  Age: 55 Year
  Sex: Male
  Weight: 66.66 kg

DRUGS (7)
  1. AMBIEN [Concomitant]
     Active Substance: ZOLPIDEM TARTRATE
  2. ALDACTONE [Concomitant]
     Active Substance: SPIRONOLACTONE
  3. MEGACE [Concomitant]
     Active Substance: MEGESTROL ACETATE
  4. TEMODAR [Concomitant]
     Active Substance: TEMOZOLOMIDE
  5. NORCO [Concomitant]
     Active Substance: ACETAMINOPHEN\HYDROCODONE BITARTRATE
  6. PREDNISONE. [Concomitant]
     Active Substance: PREDNISONE
  7. YERVOY [Suspect]
     Active Substance: IPILIMUMAB
     Indication: METASTASES TO MENINGES
     Dosage: 2ND DOSE 21FEB14
     Dates: start: 20140131

REACTIONS (2)
  - Diarrhoea [Recovering/Resolving]
  - Hepatitis [Recovering/Resolving]

NARRATIVE: CASE EVENT DATE: 201403
